FAERS Safety Report 15459029 (Version 4)
Quarter: 2018Q4

REPORT INFORMATION
  Report Type: Report from Study
  Country: IN (occurrence: IN)
  Receive Date: 20181003
  Receipt Date: 20181129
  Transmission Date: 20190204
  Serious: Yes (Other)
  Sender: FDA-Public Use
  Company Number: IN-ROCHE-2191444

PATIENT
  Age: 62 Year
  Sex: Female

DRUGS (1)
  1. HERCLON [Suspect]
     Active Substance: TRASTUZUMAB
     Indication: BREAST CANCER
     Route: 042
     Dates: start: 20180425, end: 201809

REACTIONS (3)
  - Cardiac disorder [Unknown]
  - Heart rate decreased [Unknown]
  - Ejection fraction decreased [Unknown]
